FAERS Safety Report 14510882 (Version 1)
Quarter: 2018Q1

REPORT INFORMATION
  Report Type: Spontaneous
  Country: US (occurrence: US)
  Receive Date: 20180209
  Receipt Date: 20180209
  Transmission Date: 20180509
  Serious: Yes (Hospitalization)
  Sender: FDA-Public Use
  Company Number: US-BAYER-2018-003901

PATIENT
  Age: 75 Year
  Sex: Male

DRUGS (5)
  1. COUMADIN [Suspect]
     Active Substance: WARFARIN SODIUM
     Indication: PRODUCT USED FOR UNKNOWN INDICATION
     Dosage: UNK
     Route: 065
  2. XARELTO [Suspect]
     Active Substance: RIVAROXABAN
     Indication: CARDIAC ASSISTANCE DEVICE USER
     Dosage: UNK
     Route: 048
     Dates: start: 2015, end: 201502
  3. XARELTO [Suspect]
     Active Substance: RIVAROXABAN
     Indication: CARDIAC ASSISTANCE DEVICE USER
     Dosage: 20 MG, QD
     Route: 048
     Dates: start: 201501, end: 201501
  4. ACETYLSALICYLIC ACID (} 100 MG) [Suspect]
     Active Substance: ASPIRIN
     Indication: PRODUCT USED FOR UNKNOWN INDICATION
     Dosage: 325 MG, UNK
     Route: 065
  5. XARELTO [Suspect]
     Active Substance: RIVAROXABAN
     Indication: CARDIAC ASSISTANCE DEVICE USER
     Dosage: UNK
     Route: 048
     Dates: start: 201412

REACTIONS (3)
  - Product use in unapproved indication [Unknown]
  - Off label use [Unknown]
  - Haematuria [Unknown]

NARRATIVE: CASE EVENT DATE: 201501
